FAERS Safety Report 8056971-8 (Version None)
Quarter: 2012Q1

REPORT INFORMATION
  Report Type: 
  Country: None (occurrence: None)
  Receive Date: 20120119
  Receipt Date: 20120118
  Transmission Date: 20120608
  Serious: Yes (Hospitalization)
  Sender: FDA-Public Use
  Company Number: US-VERTEX PHARMACEUTICALS INC.-AE-2012-000986

PATIENT
  Sex: Male

DRUGS (11)
  1. INCIVEK [Suspect]
     Indication: HEPATITIS C
     Route: 048
     Dates: start: 20111004
  2. CLONAZEPAM [Concomitant]
     Indication: ANXIETY
     Route: 048
  3. ATENOLOL [Concomitant]
     Indication: HYPERTENSION
  4. PEGASYS [Concomitant]
     Indication: HEPATITIS C
     Route: 058
     Dates: start: 20111004
  5. PEGASYS [Concomitant]
     Route: 058
     Dates: start: 20111201, end: 20111201
  6. VITAMIN D [Concomitant]
     Route: 048
  7. INCIVEK [Suspect]
     Route: 048
     Dates: start: 20111201, end: 20111201
  8. RIBAVIRIN [Concomitant]
     Route: 048
     Dates: start: 20111201, end: 20111201
  9. OXYCODONE HCL [Concomitant]
     Indication: PAIN
     Route: 048
  10. RIBAVIRIN [Concomitant]
     Indication: HEPATITIS C
     Route: 048
     Dates: start: 20111004
  11. OMEPRAZOLE [Concomitant]
     Indication: GASTROOESOPHAGEAL REFLUX DISEASE
     Route: 048

REACTIONS (1)
  - ARTHRALGIA [None]
